FAERS Safety Report 5570443-1 (Version None)
Quarter: 2007Q4

REPORT INFORMATION
  Report Type: 
  Country: None (occurrence: None)
  Receive Date: 20071221
  Receipt Date: 20070906
  Transmission Date: 20080405
  Serious: No
  Sender: FDA-Public Use
  Company Number: US-BRISTOL-MYERS SQUIBB COMPANY-13862610

PATIENT
  Age: 69 Year
  Sex: Female
  Weight: 61 kg

DRUGS (13)
  1. ORENCIA [Suspect]
     Indication: RHEUMATOID ARTHRITIS
     Route: 042
     Dates: start: 20070717, end: 20070717
  2. DIOVAN [Concomitant]
  3. TOPROL-XL [Concomitant]
  4. CALCIUM [Concomitant]
  5. FOLIC ACID [Concomitant]
  6. VITAMIN B6 [Concomitant]
  7. GLUCOSAMINE SULFATE + MSM [Concomitant]
  8. MILK THISTLE [Concomitant]
  9. CENTRUM [Concomitant]
  10. ASCORBIC ACID [Concomitant]
  11. MOBIC [Concomitant]
  12. MEDROL [Concomitant]
  13. VICODIN [Concomitant]

REACTIONS (3)
  - ERYTHEMA [None]
  - FUNGAL INFECTION [None]
  - SKIN ODOUR ABNORMAL [None]
